FAERS Safety Report 11514596 (Version 2)
Quarter: 2015Q3

REPORT INFORMATION
  Report Type: Report from Study
  Country: US (occurrence: US)
  Receive Date: 20150916
  Receipt Date: 20150923
  Transmission Date: 20151125
  Serious: Yes (Other)
  Sender: FDA-Public Use
  Company Number: US-GILEAD-2015-0172293

PATIENT
  Age: 64 Year
  Sex: Female

DRUGS (3)
  1. ADEMPAS [Suspect]
     Active Substance: RIOCIGUAT
     Indication: PRODUCT USED FOR UNKNOWN INDICATION
     Dosage: 1.5 MG, UNK
     Route: 065
  2. AMBRISENTAN [Suspect]
     Active Substance: AMBRISENTAN
     Indication: PULMONARY ARTERIAL HYPERTENSION
     Dosage: 10 MG, QD
     Route: 065
     Dates: start: 20150610
  3. ADEMPAS [Suspect]
     Active Substance: RIOCIGUAT
     Dosage: 2 MG, UNK
     Route: 065

REACTIONS (2)
  - Pulmonary arterial hypertension [Unknown]
  - Dyspnoea [Unknown]
